FAERS Safety Report 11760667 (Version 2)
Quarter: 2016Q1

REPORT INFORMATION
  Report Type: Other
  Country: GB (occurrence: GB)
  Receive Date: 20151120
  Receipt Date: 20160105
  Transmission Date: 20160525
  Serious: Yes (Other)
  Sender: FDA-Public Use
  Company Number: GB-MYLANLABS-2015M1039820

PATIENT

DRUGS (2)
  1. GEMCITABINE [Suspect]
     Active Substance: GEMCITABINE\GEMCITABINE HYDROCHLORIDE
     Indication: ADENOCARCINOMA
     Dosage: UNK
  2. CARBOPLATIN. [Suspect]
     Active Substance: CARBOPLATIN
     Indication: ADENOCARCINOMA
     Dosage: UNK

REACTIONS (3)
  - Disease progression [Unknown]
  - Adenocarcinoma [Unknown]
  - Pulmonary embolism [Unknown]
